FAERS Safety Report 25774727 (Version 1)
Quarter: 2025Q3

REPORT INFORMATION
  Report Type: Spontaneous
  Country: EU (occurrence: EU)
  Receive Date: 20250908
  Receipt Date: 20250908
  Transmission Date: 20251020
  Serious: Yes (Hospitalization)
  Sender: MYLAN
  Company Number: None

PATIENT
  Age: 53 Year
  Sex: Female

DRUGS (36)
  1. VENLAFAXINE [Suspect]
     Active Substance: VENLAFAXINE HYDROCHLORIDE
     Indication: Depression
     Dosage: 255 MILLIGRAM, QD
     Dates: start: 20250623, end: 20250817
  2. VENLAFAXINE [Suspect]
     Active Substance: VENLAFAXINE HYDROCHLORIDE
     Dosage: 255 MILLIGRAM, QD
     Route: 065
     Dates: start: 20250623, end: 20250817
  3. VENLAFAXINE [Suspect]
     Active Substance: VENLAFAXINE HYDROCHLORIDE
     Dosage: 255 MILLIGRAM, QD
     Route: 065
     Dates: start: 20250623, end: 20250817
  4. VENLAFAXINE [Suspect]
     Active Substance: VENLAFAXINE HYDROCHLORIDE
     Dosage: 255 MILLIGRAM, QD
     Dates: start: 20250623, end: 20250817
  5. OLANZAPINE [Suspect]
     Active Substance: OLANZAPINE
     Indication: Depression
     Dosage: 10 MILLIGRAM, QD
     Dates: start: 20250623, end: 20250817
  6. OLANZAPINE [Suspect]
     Active Substance: OLANZAPINE
     Dosage: 10 MILLIGRAM, QD
     Route: 065
     Dates: start: 20250623, end: 20250817
  7. OLANZAPINE [Suspect]
     Active Substance: OLANZAPINE
     Dosage: 10 MILLIGRAM, QD
     Route: 065
     Dates: start: 20250623, end: 20250817
  8. OLANZAPINE [Suspect]
     Active Substance: OLANZAPINE
     Dosage: 10 MILLIGRAM, QD
     Dates: start: 20250623, end: 20250817
  9. CYAMEMAZINE [Suspect]
     Active Substance: CYAMEMAZINE
     Indication: Depression
     Dosage: 100 MILLIGRAM, QD (20-20-20-40 (DROPS) PER DAY)
     Dates: start: 20250623, end: 20250817
  10. CYAMEMAZINE [Suspect]
     Active Substance: CYAMEMAZINE
     Dosage: 100 MILLIGRAM, QD (20-20-20-40 (DROPS) PER DAY)
     Route: 065
     Dates: start: 20250623, end: 20250817
  11. CYAMEMAZINE [Suspect]
     Active Substance: CYAMEMAZINE
     Dosage: 100 MILLIGRAM, QD (20-20-20-40 (DROPS) PER DAY)
     Route: 065
     Dates: start: 20250623, end: 20250817
  12. CYAMEMAZINE [Suspect]
     Active Substance: CYAMEMAZINE
     Dosage: 100 MILLIGRAM, QD (20-20-20-40 (DROPS) PER DAY)
     Dates: start: 20250623, end: 20250817
  13. BROMAZEPAM [Concomitant]
     Active Substance: BROMAZEPAM
  14. BROMAZEPAM [Concomitant]
     Active Substance: BROMAZEPAM
     Route: 065
  15. BROMAZEPAM [Concomitant]
     Active Substance: BROMAZEPAM
     Route: 065
  16. BROMAZEPAM [Concomitant]
     Active Substance: BROMAZEPAM
  17. LEVOTHYROXINE [Concomitant]
     Active Substance: LEVOTHYROXINE
  18. LEVOTHYROXINE [Concomitant]
     Active Substance: LEVOTHYROXINE
     Route: 065
  19. LEVOTHYROXINE [Concomitant]
     Active Substance: LEVOTHYROXINE
     Route: 065
  20. LEVOTHYROXINE [Concomitant]
     Active Substance: LEVOTHYROXINE
  21. MAGNESIUM [Concomitant]
     Active Substance: MAGNESIUM
  22. MAGNESIUM [Concomitant]
     Active Substance: MAGNESIUM
     Route: 065
  23. MAGNESIUM [Concomitant]
     Active Substance: MAGNESIUM
     Route: 065
  24. MAGNESIUM [Concomitant]
     Active Substance: MAGNESIUM
  25. ZOPICLONE [Concomitant]
     Active Substance: ZOPICLONE
  26. ZOPICLONE [Concomitant]
     Active Substance: ZOPICLONE
     Route: 065
  27. ZOPICLONE [Concomitant]
     Active Substance: ZOPICLONE
     Route: 065
  28. ZOPICLONE [Concomitant]
     Active Substance: ZOPICLONE
  29. DAFALGAN [Concomitant]
     Active Substance: ACETAMINOPHEN
  30. DAFALGAN [Concomitant]
     Active Substance: ACETAMINOPHEN
     Route: 065
  31. DAFALGAN [Concomitant]
     Active Substance: ACETAMINOPHEN
     Route: 065
  32. DAFALGAN [Concomitant]
     Active Substance: ACETAMINOPHEN
  33. Mycoster [Concomitant]
  34. Mycoster [Concomitant]
     Route: 065
  35. Mycoster [Concomitant]
     Route: 065
  36. Mycoster [Concomitant]

REACTIONS (3)
  - Febrile bone marrow aplasia [Recovering/Resolving]
  - Anaemia [Recovering/Resolving]
  - Thrombocytopenia [Recovering/Resolving]

NARRATIVE: CASE EVENT DATE: 20250817
